FAERS Safety Report 9282153 (Version 1)
Quarter: 2013Q2

REPORT INFORMATION
  Report Type: Spontaneous
  Country: CN (occurrence: CN)
  Receive Date: 20130510
  Receipt Date: 20130510
  Transmission Date: 20140414
  Serious: Yes (Other)
  Sender: FDA-Public Use
  Company Number: CN-ABBOTT-13X-035-1086580-00

PATIENT
  Age: 49 Year
  Sex: Female

DRUGS (1)
  1. DEPAKINE CHRONO [Suspect]
     Indication: MENTAL DISORDER
     Dosage: 0.5 GRAM (S); DAILY (EXTENDED RELEASE)
     Route: 048
     Dates: start: 20121122, end: 20121130

REACTIONS (1)
  - Generalised oedema [Recovering/Resolving]
